FAERS Safety Report 25796793 (Version 1)
Quarter: 2025Q3

REPORT INFORMATION
  Report Type: Spontaneous
  Country: US (occurrence: US)
  Receive Date: 20250912
  Receipt Date: 20250912
  Transmission Date: 20251021
  Serious: No
  Sender: ANI
  Company Number: US-ANIPHARMA-2025-US-020731

PATIENT
  Age: 56 Year
  Sex: Female

DRUGS (1)
  1. CORTICOTROPIN [Suspect]
     Active Substance: CORTICOTROPIN
     Indication: Multiple sclerosis relapse
     Route: 058
     Dates: start: 20250402, end: 20250411

REACTIONS (2)
  - Joint swelling [Recovered/Resolved]
  - Gait inability [Recovered/Resolved]
